FAERS Safety Report 8410827-7 (Version None)
Quarter: 2012Q2

REPORT INFORMATION
  Report Type: 
  Country: None (occurrence: None)
  Receive Date: 20120323
  Receipt Date: 20111129
  Transmission Date: 20120825
  Serious: Yes (Other)
  Sender: FDA-Public Use
  Company Number: 163-21880-11120230

PATIENT
  Age: 75 Year
  Sex: Male
  Weight: 104.3273 kg

DRUGS (1)
  1. REVLIMID [Suspect]
     Indication: MULTIPLE MYELOMA
     Dosage: 25 MG, Q 72 HRS, PO
     Route: 048
     Dates: start: 20100617

REACTIONS (1)
  - COAGULOPATHY [None]
